FAERS Safety Report 18711173 (Version 1)
Quarter: 2021Q1

REPORT INFORMATION
  Report Type: Spontaneous
  Country: IT (occurrence: IT)
  Receive Date: 20210107
  Receipt Date: 20210107
  Transmission Date: 20210419
  Serious: Yes (Hospitalization)
  Sender: FDA-Public Use
  Company Number: IT-ACCORD-213691

PATIENT
  Age: 53 Year
  Sex: Male

DRUGS (9)
  1. DOBETIN TOTAL [Concomitant]
  2. PEMBROLIZUMAB. [Suspect]
     Active Substance: PEMBROLIZUMAB
     Indication: NEOPLASM MALIGNANT
     Route: 042
     Dates: start: 20201106, end: 20201106
  3. FOLIC ACID. [Concomitant]
     Active Substance: FOLIC ACID
  4. DEPALGOS [Concomitant]
     Active Substance: ACETAMINOPHEN\OXYCODONE HYDROCHLORIDE
     Indication: BONE PAIN
     Dosage: 5 MG + 325 MG
     Route: 048
     Dates: start: 20200925
  5. PNEUMOCOCCAL POLYSACCHARIDE VA [Concomitant]
     Dates: start: 20201116
  6. PEMETREXED. [Concomitant]
     Active Substance: PEMETREXED
     Indication: NEOPLASM MALIGNANT
     Route: 042
     Dates: start: 20201013, end: 20201106
  7. INFLUENZA VACCINE/INFLUENZA VACCINE INACTIVATED [Concomitant]
     Active Substance: INFLUENZA VIRUS VACCINE
     Dates: start: 20201116
  8. LEVETIRACETAM. [Concomitant]
     Active Substance: LEVETIRACETAM
     Indication: MENINGIOMA BENIGN
     Route: 048
     Dates: start: 20201008
  9. CARBOPLATIN. [Suspect]
     Active Substance: CARBOPLATIN
     Indication: NEOPLASM MALIGNANT
     Route: 042
     Dates: start: 20201013, end: 20201106

REACTIONS (2)
  - Hepatocellular injury [Recovered/Resolved with Sequelae]
  - Cholestasis [Recovered/Resolved with Sequelae]

NARRATIVE: CASE EVENT DATE: 20201121
